FAERS Safety Report 19709530 (Version 1)
Quarter: 2021Q3

REPORT INFORMATION
  Report Type: Spontaneous
  Country: DE (occurrence: DE)
  Receive Date: 20210817
  Receipt Date: 20210817
  Transmission Date: 20211014
  Serious: Yes (Hospitalization)
  Sender: FDA-Public Use
  Company Number: DE-MYLANLABS-2021M1050878

PATIENT
  Age: 78 Year
  Sex: Male

DRUGS (9)
  1. PACLITAXEL. [Suspect]
     Active Substance: PACLITAXEL
     Indication: PRODUCT USED FOR UNKNOWN INDICATION
     Dosage: CYCLE 2 D1 ON 23?OCT?2020
  2. CERNEVIT [Concomitant]
     Active Substance: VITAMINS
     Dosage: 1?0?0?0
  3. CARBOPLATIN. [Suspect]
     Active Substance: CARBOPLATIN
     Dosage: CYCLE 2 D1 ON 23?OCT?2020
  4. PANTOPRAZOL                        /01263201/ [Concomitant]
     Active Substance: PANTOPRAZOLE
     Dosage: 40 MILLIGRAM (40 MG, 1?0?0?0)
  5. MOVICOL [Concomitant]
     Active Substance: POLYETHYLENE GLYCOL 3350\POTASSIUM CHLORIDE\SODIUM BICARBONATE\SODIUM CHLORIDE
     Dosage: 1?0?0?0, BEUTEL/GRANULAT
  6. TRACUTIL                           /01597201/ [Concomitant]
     Dosage: 1?0?0?0
  7. ACTRAPID [Concomitant]
     Active Substance: INSULIN HUMAN
     Dosage: 2 INTERNATIONAL UNIT (2 IE, 1?1?1?0)
     Route: 058
  8. ASPIRIN. [Concomitant]
     Active Substance: ASPIRIN
     Dosage: 100 MILLIGRAM (100 MG, 0?1?0?0 )
  9. VITAMIN D                          /00318501/ [Concomitant]
     Active Substance: CHOLECALCIFEROL
     Dosage: 1000 INTERNATIONAL UNIT (1000 IE, 1?0?0?0)

REACTIONS (4)
  - Hypoglycaemia [Unknown]
  - General physical health deterioration [Unknown]
  - Asthenia [Unknown]
  - Hyperglycaemia [Unknown]
